FAERS Safety Report 9727119 (Version 3)
Quarter: 2014Q1

REPORT INFORMATION
  Report Type: Spontaneous
  Country: JP (occurrence: JP)
  Receive Date: 20131203
  Receipt Date: 20140131
  Transmission Date: 20141002
  Serious: Yes (Other)
  Sender: FDA-Public Use
  Company Number: PHHY2013JP138622

PATIENT
  Age: 74 Year
  Sex: Female

DRUGS (5)
  1. ZOMETA [Suspect]
     Indication: BREAST CANCER METASTATIC
     Route: 041
  2. FEMARA [Suspect]
     Indication: BREAST CANCER
     Route: 048
  3. CAPECITABINE [Suspect]
     Route: 048
  4. PACLITAXEL [Suspect]
     Dosage: 102.64 MG, UNK
  5. BEVACIZUMAB [Suspect]
     Dosage: 400 MG, UNK

REACTIONS (5)
  - Skin lesion [Recovering/Resolving]
  - Metastases to spine [Unknown]
  - Proteinuria [Not Recovered/Not Resolved]
  - Hypoaesthesia [Recovering/Resolving]
  - Oedema peripheral [Recovered/Resolved]
